FAERS Safety Report 9122831 (Version 1)
Quarter: 2013Q1

REPORT INFORMATION
  Report Type: Report from Study
  Country: CA (occurrence: CA)
  Receive Date: 20130227
  Receipt Date: 20130227
  Transmission Date: 20140127
  Serious: Yes (Other)
  Sender: FDA-Public Use
  Company Number: CA-JNJFOC-20130213991

PATIENT
  Sex: Female

DRUGS (9)
  1. REMICADE [Suspect]
     Indication: RHEUMATOID ARTHRITIS
     Route: 042
     Dates: start: 20050519
  2. VITALUX NOS [Concomitant]
     Route: 048
  3. FOLIC ACID [Concomitant]
     Route: 065
  4. LIPITOR [Concomitant]
     Route: 065
  5. ATENOLOL [Concomitant]
     Route: 065
  6. CALCIUM AND VIT D [Concomitant]
     Route: 048
  7. METHOTREXATE [Concomitant]
     Route: 065
  8. TECTA [Concomitant]
     Route: 065
  9. RISEDRONATE [Concomitant]
     Route: 065

REACTIONS (1)
  - Cataract [Unknown]
